FAERS Safety Report 6268361-9 (Version None)
Quarter: 2009Q3

REPORT INFORMATION
  Report Type: 
  Country: None (occurrence: None)
  Receive Date: 20090715
  Receipt Date: 20090708
  Transmission Date: 20100115
  Serious: No
  Sender: FDA-Public Use
  Company Number: US-ASTRAZENECA-2009UW12677

PATIENT
  Age: 71 Year
  Sex: Male
  Weight: 116.4 kg

DRUGS (1)
  1. NEXIUM IV [Suspect]
     Route: 042
     Dates: start: 20090514, end: 20090501

REACTIONS (4)
  - BLISTER [None]
  - EXTRAVASATION [None]
  - PALLOR [None]
  - WOUND SECRETION [None]
